FAERS Safety Report 5983383-0 (Version None)
Quarter: 2008Q4

REPORT INFORMATION
  Report Type: 
  Country: None (occurrence: None)
  Receive Date: 20081208
  Receipt Date: 20081107
  Transmission Date: 20090506
  Serious: No
  Sender: FDA-Public Use
  Company Number: US-BAYER-200814343BCC

PATIENT
  Age: 13 Year
  Sex: Male
  Weight: 62 kg

DRUGS (4)
  1. ALEVE (CAPLET) [Suspect]
     Indication: PROCEDURAL PAIN
     Dosage: TOTAL DAILY DOSE: 880 MG  UNIT DOSE: 220 MG
     Route: 048
     Dates: start: 20081107
  2. ABILIFY [Concomitant]
  3. LAMICTAL [Concomitant]
  4. NEURONTIN [Concomitant]

REACTIONS (1)
  - ABDOMINAL DISCOMFORT [None]
